FAERS Safety Report 20485877 (Version 2)
Quarter: 2022Q1

REPORT INFORMATION
  Report Type: Spontaneous
  Country: CN (occurrence: CN)
  Receive Date: 20220217
  Receipt Date: 20220304
  Transmission Date: 20220424
  Serious: Yes (Hospitalization)
  Sender: FDA-Public Use
  Company Number: CN-TEVA-2022-CN-2007116

PATIENT
  Age: 50 Year
  Sex: Male

DRUGS (4)
  1. CYCLOSPORINE [Suspect]
     Active Substance: CYCLOSPORINE
     Indication: Angioimmunoblastic T-cell lymphoma
     Dosage: 300 MILLIGRAM DAILY; (ABOUT 4MG/KG/DAY) AND LATER TAPERED SLOWLY TO 100MG/DAY
     Route: 065
     Dates: start: 2014
  2. CYCLOSPORINE [Suspect]
     Active Substance: CYCLOSPORINE
     Dosage: 100 MILLIGRAM DAILY;
     Route: 065
     Dates: start: 2014
  3. PREDNISONE [Suspect]
     Active Substance: PREDNISONE
     Indication: Angioimmunoblastic T-cell lymphoma
     Dosage: 15 MILLIGRAM DAILY; OVER 12 MONTHS
     Route: 048
     Dates: start: 2014
  4. Immune-globulin [Concomitant]
     Indication: Infection
     Route: 042
     Dates: start: 2014

REACTIONS (3)
  - Epstein-Barr virus infection reactivation [Recovering/Resolving]
  - Epstein-Barr virus associated lymphoma [Recovering/Resolving]
  - Off label use [Unknown]

NARRATIVE: CASE EVENT DATE: 20140101
